FAERS Safety Report 7464728-1 (Version None)
Quarter: 2011Q2

REPORT INFORMATION
  Report Type: 
  Country: None (occurrence: None)
  Receive Date: 20110509
  Receipt Date: 20110426
  Transmission Date: 20111010
  Serious: Yes (Other)
  Sender: FDA-Public Use
  Company Number: US-ELI_LILLY_AND_COMPANY-US201103000465

PATIENT
  Sex: Female
  Weight: 92.971 kg

DRUGS (7)
  1. BIO-H-TIN [Concomitant]
  2. ZETIA [Concomitant]
  3. VITAMIN D [Concomitant]
  4. CRESTOR [Concomitant]
  5. EVISTA [Suspect]
     Indication: OSTEOPENIA
     Dosage: 60 MG, DAILY (1/D)
     Route: 048
     Dates: start: 19970101
  6. FEMARA [Concomitant]
  7. FISH OIL [Concomitant]

REACTIONS (4)
  - HOT FLUSH [None]
  - BREAST CANCER STAGE III [None]
  - MUSCLE SPASMS [None]
  - PAIN IN EXTREMITY [None]
